FAERS Safety Report 14325277 (Version 12)
Quarter: 2021Q2

REPORT INFORMATION
  Report Type: Report from Study
  Country: PL (occurrence: PL)
  Receive Date: 20171226
  Receipt Date: 20210419
  Transmission Date: 20210716
  Serious: Yes (Life-Threatening, Hospitalization, Other)
  Sender: FDA-Public Use
  Company Number: PL-AMGEN-POLCT2017189966

PATIENT
  Age: 5 Year
  Sex: Male
  Weight: 15.4 kg

DRUGS (50)
  1. VINCRISTINE [Suspect]
     Active Substance: VINCRISTINE
     Indication: ACUTE LYMPHOCYTIC LEUKAEMIA
     Dosage: 1.02 MILLIGRAM
     Route: 065
     Dates: start: 20171110
  2. PYRALGINUM [Concomitant]
     Active Substance: METAMIZOLE SODIUM
     Dosage: 0.5?0.8 MILLILITRE
     Route: 042
     Dates: start: 20171114, end: 20171115
  3. SILIBININ [Concomitant]
     Active Substance: SILIBININ
     Dosage: 175 MILLIGRAM
     Route: 042
     Dates: start: 20171214, end: 20171224
  4. TOPAMAX [Concomitant]
     Active Substance: TOPIRAMATE
     Dosage: 12.5 MG, UNK
     Route: 048
     Dates: start: 20161124
  5. DEBRIDAT [Concomitant]
     Active Substance: TRIMEBUTINE MALEATE
     Dosage: 25 MG, UNK
     Route: 048
     Dates: start: 20171007, end: 20171217
  6. METHOTREXATE. [Suspect]
     Active Substance: METHOTREXATE
     Indication: ACUTE LYMPHOCYTIC LEUKAEMIA
     Dosage: 680 MILLIGRAM
     Route: 065
     Dates: start: 20171110
  7. METHOTREXATE. [Concomitant]
     Active Substance: METHOTREXATE
     Dosage: 12 MILLIGRAM
     Route: 037
     Dates: start: 20171107, end: 20171211
  8. UROMITEXAN [Concomitant]
     Active Substance: MESNA
     Dosage: 204 MILLIGRAM
     Route: 042
     Dates: start: 20171111, end: 20171111
  9. NO SPA [Concomitant]
     Active Substance: DROTAVERINE HYDROCHLORIDE
     Dosage: 20 MILLIGRAM
     Route: 042
     Dates: start: 20171114, end: 20171126
  10. SILIBININ [Concomitant]
     Active Substance: SILIBININ
     Dosage: 35?175 MG, UNK
     Dates: start: 20170929, end: 20171224
  11. TAZOCIN [Concomitant]
     Active Substance: PIPERACILLIN SODIUM\TAZOBACTAM SODIUM
     Dosage: 1745 MG, UNK
     Route: 042
     Dates: start: 20171128, end: 20171215
  12. VITAMIN D3 [Concomitant]
     Active Substance: CHOLECALCIFEROL
     Dosage: 1000 UNK, UNK
     Route: 048
     Dates: start: 201209
  13. ASPARAGINASE [Suspect]
     Active Substance: ASPARAGINASE
     Indication: ACUTE LYMPHOCYTIC LEUKAEMIA
     Dosage: 680 UNK
     Route: 065
     Dates: start: 20171120
  14. PREDNISOLON [Concomitant]
     Active Substance: PREDNISOLONE
     Dosage: 10 MILLIGRAM
     Route: 037
     Dates: start: 20171107, end: 20171211
  15. TAUROLOCK [Concomitant]
     Active Substance: TAUROLIDINE
     Dosage: 0.8 ML, UNK
     Route: 050
     Dates: start: 20171118
  16. PLATELETS [Concomitant]
     Active Substance: HUMAN PLATELET, ALLOGENIC
     Dosage: 294 ML, UNK
     Route: 042
     Dates: start: 20171118, end: 20171118
  17. CLARITHROMYCIN. [Concomitant]
     Active Substance: CLARITHROMYCIN
     Dosage: 125 MG, UNK
     Route: 042
     Dates: start: 20171128, end: 20171215
  18. CHOLINE [Concomitant]
     Active Substance: CHOLINE
     Dosage: 35 MILLIGRAM
     Route: 048
     Dates: start: 20171205, end: 20171214
  19. DEXAMETHASONE. [Suspect]
     Active Substance: DEXAMETHASONE
     Indication: ACUTE LYMPHOCYTIC LEUKAEMIA
     Dosage: 3.4 MILLIGRAM
     Route: 065
     Dates: start: 20171110
  20. FENOTEROL W/IPRATROPIUM BROMIDE [Concomitant]
     Dosage: 10 GTT DROPS
     Route: 045
     Dates: start: 20171026, end: 20171206
  21. CALCIUM LEUCOVORIN [Concomitant]
     Active Substance: LEUCOVORIN CALCIUM
     Dosage: 10.2 MILLIGRAM
     Route: 042
     Dates: start: 20171112, end: 20171112
  22. ALBUMINE [Concomitant]
     Active Substance: ALBUMIN HUMAN
     Dosage: 50 ML, UNK
     Route: 042
     Dates: start: 20171114, end: 20171217
  23. RED BLOOD CELLS, CONCENTRATED [Concomitant]
     Active Substance: HUMAN RED BLOOD CELL
     Dosage: 220 ML, UNK
     Route: 042
     Dates: start: 20171118, end: 20171211
  24. DEXAMETHASONE. [Concomitant]
     Active Substance: DEXAMETHASONE
     Dosage: 2 MG, UNK
     Route: 042
     Dates: start: 20171211, end: 20171211
  25. VITAMINUM B1 [Concomitant]
     Dosage: 25 MUG, UNK
     Route: 048
     Dates: start: 20171027, end: 20171217
  26. DAUNORUBICIN [Suspect]
     Active Substance: DAUNORUBICIN
     Indication: ACUTE LYMPHOCYTIC LEUKAEMIA
     Dosage: 20.4 MILLIGRAM
     Route: 065
     Dates: start: 20171114
  27. BLINATUMOMAB [Suspect]
     Active Substance: BLINATUMOMAB
     Dosage: 6.9 MICROGRAM, QD
     Route: 065
     Dates: start: 20171229, end: 20180101
  28. URSOPOL [Concomitant]
     Dosage: 150 MILLIGRAM
     Route: 048
     Dates: start: 20170928
  29. CIPROFLOXACIN. [Concomitant]
     Active Substance: CIPROFLOXACIN
     Dosage: 165 MILLIGRAM
     Route: 042
     Dates: start: 20171109, end: 20171120
  30. CYTARABINE. [Concomitant]
     Active Substance: CYTARABINE
     Dosage: 30 MILLIGRAM
     Route: 037
     Dates: start: 20171107, end: 20171211
  31. PANTOPRAZOLE [Concomitant]
     Active Substance: PANTOPRAZOLE
     Dosage: 20 MILLIGRAM
     Route: 048
     Dates: start: 20171110, end: 20171116
  32. DICORTINEFF [Concomitant]
     Dosage: 1 GTT DROPS
     Route: 047
     Dates: start: 20171113, end: 20171205
  33. IFOSFAMIDE. [Suspect]
     Active Substance: IFOSFAMIDE
     Indication: ACUTE LYMPHOCYTIC LEUKAEMIA
     Dosage: 544 MILLIGRAM
     Route: 065
     Dates: start: 20171111
  34. BLINATUMOMAB [Suspect]
     Active Substance: BLINATUMOMAB
     Dosage: 3.45 MICROGRAM, QD
     Route: 065
     Dates: start: 20171221, end: 20171228
  35. BUDESONIDUM [Concomitant]
     Active Substance: BUDESONIDE
     Dosage: 250 MICROGRAM
     Route: 045
     Dates: start: 20171026, end: 20171225
  36. FUROSEMIDUM [Concomitant]
     Active Substance: FUROSEMIDE
     Dosage: 7 MILLIGRAM
     Route: 042
     Dates: start: 20171110, end: 20171126
  37. SINGULAIR [Concomitant]
     Active Substance: MONTELUKAST SODIUM
     Dosage: 4 MILLIGRAM
     Route: 048
     Dates: start: 20170401, end: 20180117
  38. CLEMASTINUM [Concomitant]
     Active Substance: CLEMASTINE FUMARATE
     Dosage: 0.4?0.5 MG, UNK
     Route: 042
     Dates: start: 20171030, end: 20171102
  39. ZYRTEC [Concomitant]
     Active Substance: CETIRIZINE HYDROCHLORIDE
     Dosage: 5 MG, UNK
     Route: 048
     Dates: start: 20170401, end: 20180117
  40. HEPA?MERZ [Concomitant]
     Dosage: 3 G, UNK
     Route: 042
     Dates: start: 20171114, end: 20171205
  41. BLINATUMOMAB [Suspect]
     Active Substance: BLINATUMOMAB
     Indication: ACUTE LYMPHOCYTIC LEUKAEMIA
     Dosage: UNK
     Route: 065
     Dates: start: 20171215
  42. COLISTIN [Concomitant]
     Active Substance: COLISTIN
     Dosage: 390 INTERNATIONAL UNIT,UNK AND 1000 UNK, UNK
     Route: 042
     Dates: start: 20171102, end: 20171127
  43. ONDANSETRON [Concomitant]
     Active Substance: ONDANSETRON
     Dosage: 3?4 MILLIGRAM
     Route: 042
     Dates: start: 20171107, end: 20171211
  44. FRESH FROZEN PLASMA [Concomitant]
     Active Substance: HUMAN PLASMA
     Dosage: 1 UNK, UNK
     Route: 042
     Dates: start: 20171030, end: 20171216
  45. FENACTIL [Concomitant]
     Active Substance: CHLORPROMAZINE HYDROCHLORIDE
     Dosage: 2 MG, UNK
     Route: 042
     Dates: start: 20171117, end: 20171117
  46. BLINATUMOMAB [Suspect]
     Active Substance: BLINATUMOMAB
     Dosage: 10.35 MICROGRAM, QD
     Route: 065
     Dates: start: 20180102, end: 20180117
  47. ESSENTIAL PHOSPHOLIPIDS [Concomitant]
     Dosage: 0.3 GRAM
     Route: 048
     Dates: start: 20170928, end: 20171217
  48. TOBREX [Concomitant]
     Active Substance: TOBRAMYCIN
     Dosage: 1 UNK, UNK
     Route: 047
     Dates: start: 20171126, end: 20171127
  49. KLACID [Concomitant]
     Active Substance: CLARITHROMYCIN
     Dosage: 125 MG, UNK
     Route: 048
     Dates: start: 20171127, end: 20171128
  50. FLUMYCON [Concomitant]
     Active Substance: FLUCONAZOLE
     Dosage: 100 MG, UNK
     Route: 048
     Dates: start: 20171020, end: 20171216

REACTIONS (2)
  - Hepatotoxicity [Recovered/Resolved]
  - Capillary leak syndrome [Recovered/Resolved]

NARRATIVE: CASE EVENT DATE: 20171216
